FAERS Safety Report 6453315-X (Version None)
Quarter: 2009Q4

REPORT INFORMATION
  Report Type: 
  Country: None (occurrence: None)
  Receive Date: 20091123
  Receipt Date: 20091123
  Transmission Date: 20100525
  Serious: No
  Sender: FDA-Public Use
  Company Number: None

PATIENT
  Sex: Male
  Weight: 89.3586 kg

DRUGS (1)
  1. GLEEVEC [Suspect]
     Indication: GASTROINTESTINAL STROMAL TUMOUR
     Dosage: 400MG DAILY PO
     Route: 048
     Dates: start: 20090601, end: 20091009

REACTIONS (3)
  - DRY SKIN [None]
  - PRURITUS [None]
  - SKIN CHAPPED [None]
